FAERS Safety Report 18647956 (Version 1)
Quarter: 2020Q4

REPORT INFORMATION
  Report Type: Report from Study
  Country: CA (occurrence: CA)
  Receive Date: 20201222
  Receipt Date: 20201222
  Transmission Date: 20210114
  Serious: Yes (Hospitalization, Other)
  Sender: FDA-Public Use
  Company Number: CA-GLAXOSMITHKLINE-CA2020AMR187593

PATIENT
  Age: 48 Year
  Sex: Male

DRUGS (1)
  1. MEPOLIZUMAB [Suspect]
     Active Substance: MEPOLIZUMAB
     Indication: ASTHMA
     Dosage: 100 MG, Z, MONTHLY
     Route: 042
     Dates: start: 20180220

REACTIONS (3)
  - Dyspnoea [Unknown]
  - Renal transplant [Unknown]
  - Complications of transplant surgery [Not Recovered/Not Resolved]

NARRATIVE: CASE EVENT DATE: 202010
